FAERS Safety Report 23346380 (Version 1)
Quarter: 2023Q4

REPORT INFORMATION
  Report Type: Spontaneous
  Country: US (occurrence: None)
  Receive Date: 20231227
  Receipt Date: 20231227
  Transmission Date: 20240110
  Serious: Yes (Death)
  Sender: FDA-Public Use
  Company Number: None

PATIENT
  Age: 59 Year
  Sex: Female

DRUGS (1)
  1. OFEV [Suspect]
     Active Substance: NINTEDANIB
     Indication: Interstitial lung disease
     Dosage: FREQUENCY : TWICE A DAY;?
     Route: 048
     Dates: start: 20220721, end: 20231004

REACTIONS (7)
  - COVID-19 [None]
  - Myocardial infarction [None]
  - Abdominal pain [None]
  - Septic shock [None]
  - Hypoxia [None]
  - Hypervolaemia [None]
  - Sinus tachycardia [None]

NARRATIVE: CASE EVENT DATE: 20231004
